FAERS Safety Report 7153594 (Version 3)
Quarter: 2014Q4

REPORT INFORMATION
  Report Type: Spontaneous
  Country: US (occurrence: US)
  Receive Date: 20091020
  Receipt Date: 20141209
  Transmission Date: 20150529
  Serious: Yes (Hospitalization, Other)
  Sender: FDA-Public Use
  Company Number: US-ELI_LILLY_AND_COMPANY-US200910002203

PATIENT
  Age: 40 Year
  Sex: Female

DRUGS (2)
  1. OLANZAPINE. [Suspect]
     Active Substance: OLANZAPINE
     Dosage: 20 MG, DAILY (1/D)
  2. OLANZAPINE. [Suspect]
     Active Substance: OLANZAPINE
     Dosage: 15 MG, DAILY (1/D)

REACTIONS (5)
  - Weight increased [Unknown]
  - Sedation [Unknown]
  - Pre-eclampsia [Unknown]
  - Gestational diabetes [Unknown]
  - Exposure during pregnancy [Recovered/Resolved]
